FAERS Safety Report 8988775 (Version 2)
Quarter: 2013Q1

REPORT INFORMATION
  Report Type: Spontaneous
  Country: BR (occurrence: BR)
  Receive Date: 20121228
  Receipt Date: 20130104
  Transmission Date: 20140127
  Serious: Yes (Death)
  Sender: FDA-Public Use
  Company Number: PHHY2012BR120435

PATIENT
  Sex: Female
  Weight: 70 kg

DRUGS (2)
  1. DIOVAN [Suspect]
     Indication: BLOOD PRESSURE ABNORMAL
     Dosage: 3 DF, DAILY
     Route: 048
  2. VERAPAMIL [Concomitant]
     Indication: CARDIAC DISORDER
     Dosage: 2 DF, DAILY (40 MG)
     Route: 048

REACTIONS (2)
  - Cerebrovascular accident [Fatal]
  - Hypertension [Fatal]
